FAERS Safety Report 4390250-5 (Version None)
Quarter: 2004Q3

REPORT INFORMATION
  Report Type: 
  Country: None (occurrence: None)
  Receive Date: 20040706
  Receipt Date: 20040525
  Transmission Date: 20050211
  Serious: Yes (Hospitalization)
  Sender: FDA-Public Use
  Company Number: BE-ROCHE-368794

PATIENT
  Age: 39 Year
  Sex: Male
  Weight: 65 kg

DRUGS (4)
  1. PEG-INTERFERON ALFA 2A (RO 25-8310) [Suspect]
     Route: 058
     Dates: start: 20030819
  2. RIBAVIRIN [Suspect]
     Route: 048
     Dates: start: 20030819
  3. AMANTAN [Concomitant]
     Dates: start: 20030819
  4. UNKNOWN MEDICATION NOS [Concomitant]
     Dosage: DRUG REPORTED AS BIO-PUNCH

REACTIONS (1)
  - BRONCHITIS [None]
